FAERS Safety Report 19971824 (Version 2)
Quarter: 2021Q4

REPORT INFORMATION
  Report Type: Spontaneous
  Country: US (occurrence: US)
  Receive Date: 20211019
  Receipt Date: 20211119
  Transmission Date: 20220304
  Serious: No
  Sender: FDA-Public Use
  Company Number: US-IPSEN BIOPHARMACEUTICALS, INC.-2021-24797

PATIENT
  Age: 57 Year
  Sex: Female
  Weight: 72.5 kg

DRUGS (8)
  1. DYSPORT [Suspect]
     Active Substance: ABOBOTULINUMTOXINA
     Indication: Skin wrinkling
     Dosage: 47 UNITS (8 UNITS FRONTALIS, 9 UNITS FOR ORBICULAR OCULI BL, 30 UNITS GLABELLAR COMPLEX)
     Route: 058
     Dates: start: 20210713, end: 20210713
  2. DYSPORT [Suspect]
     Active Substance: ABOBOTULINUMTOXINA
     Indication: Skin wrinkling
  3. DYSPORT [Suspect]
     Active Substance: ABOBOTULINUMTOXINA
     Indication: Skin wrinkling
  4. DYSPORT [Suspect]
     Active Substance: ABOBOTULINUMTOXINA
     Indication: Off label use
  5. HYALURONIC ACID [Suspect]
     Active Substance: HYALURONIC ACID
     Indication: Dermal filler injection
     Dosage: 2 SYRINGES
     Dates: start: 20210713, end: 20210713
  6. LEVOTHYROXINE [Concomitant]
     Active Substance: LEVOTHYROXINE
     Indication: Hypothyroidism
     Dosage: 150 MCG
  7. GABAPENTIN [Concomitant]
     Active Substance: GABAPENTIN
  8. LAMICTAL [Concomitant]
     Active Substance: LAMOTRIGINE
     Indication: Depression
     Dosage: 200 MG

REACTIONS (5)
  - Injection site swelling [Recovering/Resolving]
  - Periorbital swelling [Recovering/Resolving]
  - Nose deformity [Recovering/Resolving]
  - Off label use [Unknown]
  - Incorrect route of product administration [Unknown]

NARRATIVE: CASE EVENT DATE: 20210713
